FAERS Safety Report 14665729 (Version 1)
Quarter: 2018Q1

REPORT INFORMATION
  Report Type: Spontaneous
  Country: US (occurrence: US)
  Receive Date: 20180321
  Receipt Date: 20180321
  Transmission Date: 20180509
  Serious: No
  Sender: FDA-Public Use
  Company Number: US-ASTRAZENECA-2018SE22825

PATIENT
  Age: 19102 Day
  Sex: Female
  Weight: 94.8 kg

DRUGS (4)
  1. BYDUREON [Suspect]
     Active Substance: EXENATIDE
     Indication: TYPE 2 DIABETES MELLITUS
     Route: 065
     Dates: start: 20180124, end: 20180214
  2. LISINOPRIL. [Concomitant]
     Active Substance: LISINOPRIL
  3. ZOCOR [Concomitant]
     Active Substance: SIMVASTATIN
  4. BENICAR [Concomitant]
     Active Substance: OLMESARTAN MEDOXOMIL

REACTIONS (3)
  - Injection site pruritus [Unknown]
  - Injection site mass [Unknown]
  - Pruritus [Unknown]

NARRATIVE: CASE EVENT DATE: 20180213
